FAERS Safety Report 8471482-3 (Version None)
Quarter: 2012Q2

REPORT INFORMATION
  Report Type: 
  Country: None (occurrence: None)
  Receive Date: 20120627
  Receipt Date: 20120623
  Transmission Date: 20120825
  Serious: No
  Sender: FDA-Public Use
  Company Number: US-TEVA-344955USA

PATIENT
  Age: 31 Year
  Sex: Female
  Weight: 52.21 kg

DRUGS (3)
  1. PAIN MEDICATION [Concomitant]
  2. PLAN B ONE-STEP [Suspect]
     Indication: POST COITAL CONTRACEPTION
     Dosage: 1.5 MILLIGRAM;
     Route: 048
     Dates: start: 20120601, end: 20120601
  3. PAIN MEDICATION [Concomitant]
     Indication: PAIN

REACTIONS (2)
  - DRUG INEFFECTIVE [None]
  - PREGNANCY [None]
